FAERS Safety Report 7472545-1 (Version None)
Quarter: 2011Q2

REPORT INFORMATION
  Report Type: 
  Country: None (occurrence: None)
  Receive Date: 20110511
  Receipt Date: 20100907
  Transmission Date: 20111010
  Serious: No
  Sender: FDA-Public Use
  Company Number: US-AMGEN-TCS436620

PATIENT
  Age: 47 Year
  Sex: Female

DRUGS (2)
  1. ENBREL [Suspect]
     Indication: PSORIATIC ARTHROPATHY
     Dosage: 50 MG, QWK
     Route: 058
     Dates: start: 20100729
  2. METHOTREXATE [Concomitant]
     Dosage: UNK UNK, UNK

REACTIONS (10)
  - PSORIASIS [None]
  - INJECTION SITE WARMTH [None]
  - PYREXIA [None]
  - HEADACHE [None]
  - NECK PAIN [None]
  - MUSCULOSKELETAL PAIN [None]
  - INJECTION SITE PRURITUS [None]
  - PAIN [None]
  - INJECTION SITE HAEMATOMA [None]
  - PRURITUS [None]
